FAERS Safety Report 9582966 (Version 1)
Quarter: 2013Q4

REPORT INFORMATION
  Report Type: Spontaneous
  Country: US (occurrence: US)
  Receive Date: 20131002
  Receipt Date: 20131002
  Transmission Date: 20140711
  Serious: No
  Sender: FDA-Public Use
  Company Number: US-AMGEN-USASP2013043981

PATIENT
  Age: 50 Year
  Sex: Female
  Weight: 78.01 kg

DRUGS (7)
  1. ENBREL [Suspect]
     Indication: PRODUCT USED FOR UNKNOWN INDICATION
     Dosage: 50 MG, QWK
     Route: 058
  2. SYNTHROID [Concomitant]
     Dosage: 112 MUG, UNK
  3. METHOTREXATE [Concomitant]
     Dosage: 2.5 MG, UNK
  4. ZOLOFT [Concomitant]
     Dosage: 100 MG, UNK
  5. VITAMIN D                          /00107901/ [Concomitant]
     Dosage: 2000 UNIT, UNK
  6. FOLIC ACID [Concomitant]
     Dosage: UNK
  7. VITAMIN B COMPLEX [Concomitant]
     Dosage: UNK

REACTIONS (3)
  - Rash [Unknown]
  - Urticaria [Unknown]
  - Pain [Unknown]
